FAERS Safety Report 8238971-8 (Version None)
Quarter: 2012Q1

REPORT INFORMATION
  Report Type: 
  Country: None (occurrence: None)
  Receive Date: 20120327
  Receipt Date: 20120323
  Transmission Date: 20120608
  Serious: Yes (Other)
  Sender: FDA-Public Use
  Company Number: PHHY2011CO21078

PATIENT
  Sex: Male

DRUGS (4)
  1. EXELON [Suspect]
     Indication: DEMENTIA ALZHEIMER'S TYPE
     Dosage: 4.6 MG / 24 HOURS
     Route: 062
     Dates: start: 20110212
  2. MEMANTINE [Concomitant]
  3. CARBIDOPA [Concomitant]
  4. AKATINOL [Concomitant]

REACTIONS (4)
  - TREMOR [None]
  - SOMNOLENCE [None]
  - ABASIA [None]
  - ASTHENIA [None]
